FAERS Safety Report 8520372-6 (Version None)
Quarter: 2012Q3

REPORT INFORMATION
  Report Type: 
  Country: None (occurrence: None)
  Receive Date: 20120719
  Receipt Date: 20120710
  Transmission Date: 20120928
  Serious: Yes (Hospitalization)
  Sender: FDA-Public Use
  Company Number: GB-MPIJNJ-2011-00589

PATIENT

DRUGS (7)
  1. DOXORUBICIN HCL [Suspect]
     Indication: MANTLE CELL LYMPHOMA
     Dosage: 96 MG, UNK
     Route: 042
  2. PREDNISONE [Suspect]
     Indication: MANTLE CELL LYMPHOMA
     Dosage: 100 MG, UNK
  3. CYCLOPHOSPHAMIDE [Suspect]
     Indication: MANTLE CELL LYMPHOMA
     Dosage: 1440 MG, UNK
     Route: 042
  4. PREDNISONE [Suspect]
     Dosage: 80 UNK, UNK
  5. SANDO K                            /00031402/ [Concomitant]
     Route: 048
  6. VINCRISTINE [Suspect]
     Indication: MANTLE CELL LYMPHOMA
  7. VELCADE [Suspect]
     Indication: MANTLE CELL LYMPHOMA
     Dosage: 3 MG, UNK
     Route: 042
     Dates: start: 20110127

REACTIONS (2)
  - NEUTROPENIA [None]
  - INFECTION [None]
